FAERS Safety Report 5287871-4 (Version None)
Quarter: 2007Q1

REPORT INFORMATION
  Report Type: 
  Country: None (occurrence: None)
  Receive Date: 20070330
  Receipt Date: 20070316
  Transmission Date: 20070707
  Serious: Yes (Death)
  Sender: FDA-Public Use
  Company Number: 108

PATIENT
  Sex: Female

DRUGS (6)
  1. FAZACLO ODT [Suspect]
     Indication: SCHIZOAFFECTIVE DISORDER
     Dosage: 500 MG PO DAILY
     Route: 048
     Dates: start: 20050818, end: 20070204
  2. VERAPAMIL [Concomitant]
  3. PHENOBARBITAL TAB [Concomitant]
  4. LASIX [Concomitant]
  5. KLOR-CON [Concomitant]
  6. ALBUTEROL [Concomitant]

REACTIONS (3)
  - CHRONIC OBSTRUCTIVE PULMONARY DISEASE [None]
  - PNEUMONIA [None]
  - RESPIRATORY FAILURE [None]
